FAERS Safety Report 14985149 (Version 1)
Quarter: 2018Q2

REPORT INFORMATION
  Report Type: Other
  Country: IT (occurrence: IT)
  Receive Date: 20180607
  Receipt Date: 20180607
  Transmission Date: 20180711
  Serious: Yes (Hospitalization)
  Sender: FDA-Public Use
  Company Number: IT-MACLEODS PHARMACEUTICALS US LTD-MAC2018014156

PATIENT

DRUGS (5)
  1. ARIPIPRAZOLE TABLET [Suspect]
     Active Substance: ARIPIPRAZOLE
     Indication: INTENTIONAL SELF-INJURY
     Dosage: 210 MILLIGRAM, TOTAL
     Route: 048
     Dates: start: 20180126, end: 20180126
  2. ESCITALOPRAM [Suspect]
     Active Substance: ESCITALOPRAM OXALATE
     Indication: INTENTIONAL SELF-INJURY
     Dosage: 140 MILLIGRAM, TOTAL, ABUSE / MISUSE
     Route: 048
     Dates: start: 20180126, end: 20180126
  3. ZITROMAX [Suspect]
     Active Substance: AZITHROMYCIN
     Indication: INTENTIONAL SELF-INJURY
     Dosage: 1500 MILLIGRAM, TOTAL, 500 MG COATED TABLETS WITH FILM
     Route: 048
     Dates: start: 20180126, end: 20180126
  4. ALPRAZOLAM. [Suspect]
     Active Substance: ALPRAZOLAM
     Indication: INTENTIONAL SELF-INJURY
     Dosage: 15 MILLILITER, TOTAL
     Route: 048
     Dates: start: 20180126, end: 20180126
  5. PROZIN (CHLORPROMAZINE HYDROCHLORIDE) [Suspect]
     Active Substance: CHLORPROMAZINE HYDROCHLORIDE
     Indication: INTENTIONAL SELF-INJURY
     Dosage: 1200 MILLIGRAM, TOTAL, 25 MG COVERED TABLETS, ABUSE / MISUSE
     Route: 048
     Dates: start: 20180126, end: 20180126

REACTIONS (1)
  - Sopor [Recovering/Resolving]

NARRATIVE: CASE EVENT DATE: 20180126
